FAERS Safety Report 8780327 (Version 3)
Quarter: 2013Q1

REPORT INFORMATION
  Report Type: Spontaneous
  Country: CA (occurrence: None)
  Receive Date: 20120829
  Receipt Date: 20121031
  Transmission Date: 20140127
  Serious: Yes (Other)
  Sender: FDA-Public Use
  Company Number: ADR-2012-01568

PATIENT
  Sex: Male

DRUGS (2)
  1. BACLOFEN [Suspect]
  2. DILAUDID [Concomitant]

REACTIONS (4)
  - Device power source issue [None]
  - Nausea [None]
  - Feeling of body temperature change [None]
  - Inadequate analgesia [None]
